FAERS Safety Report 4535008-9 (Version None)
Quarter: 2004Q4

REPORT INFORMATION
  Report Type: 
  Country: None (occurrence: None)
  Receive Date: 20041214
  Receipt Date: 20041019
  Transmission Date: 20050328
  Serious: No
  Sender: FDA-Public Use
  Company Number: 2004227442US

PATIENT
  Age: 21 Year
  Sex: Female
  Weight: 88.9 kg

DRUGS (3)
  1. BEXTRA [Suspect]
     Indication: ENDOMETRIOSIS
     Dosage: 20 MG, BID
     Dates: start: 20040803, end: 20040804
  2. KLONOPIN [Concomitant]
  3. EFFEXOR [Concomitant]

REACTIONS (1)
  - MUSCLE CRAMP [None]
